FAERS Safety Report 8791261 (Version 1)
Quarter: 2012Q4

REPORT INFORMATION
  Report Type: Spontaneous
  Country: FR (occurrence: None)
  Receive Date: 20120911
  Receipt Date: 20120911
  Transmission Date: 20130627
  Serious: Yes (Other)
  Sender: FDA-Public Use
  Company Number: NGX_01291_2012

PATIENT
  Age: 60 Year
  Sex: Female

DRUGS (4)
  1. QUTENZA [Suspect]
     Indication: NEURALGIA
     Dosage: (1 DF 1x Topical)
     Route: 061
     Dates: start: 20120523, end: 20120523
  2. LAROXYL [Concomitant]
  3. VERSATIS [Concomitant]
  4. SECTRAL [Concomitant]

REACTIONS (11)
  - Panniculitis [None]
  - Application site erythema [None]
  - Application site pain [None]
  - Application site pain [None]
  - Neuralgia [None]
  - Condition aggravated [None]
  - Skin plaque [None]
  - Dermo-hypodermitis [None]
  - Application site nodule [None]
  - Application site discolouration [None]
  - Hypoaesthesia [None]
